FAERS Safety Report 5578733-3 (Version None)
Quarter: 2007Q4

REPORT INFORMATION
  Report Type: 
  Country: None (occurrence: None)
  Receive Date: 20071227
  Receipt Date: 20071217
  Transmission Date: 20080405
  Serious: Yes (Other)
  Sender: FDA-Public Use
  Company Number: CHPA2007US13765

PATIENT
  Sex: Female

DRUGS (1)
  1. .EXCEDRIN ES BACK + BODY (NCH)(ACETYLSALICYLICYLIC ACID, ACETAMINOPHEN [Suspect]
     Indication: ARTHRITIS
     Dosage: ORAL
     Route: 048
     Dates: end: 20070901

REACTIONS (1)
  - GASTRIC ULCER [None]
